FAERS Safety Report 10034099 (Version 1)
Quarter: 2014Q1

REPORT INFORMATION
  Report Type: Spontaneous
  Country: US (occurrence: None)
  Receive Date: 20140324
  Receipt Date: 20140324
  Transmission Date: 20141002
  Serious: Yes (Other)
  Sender: FDA-Public Use
  Company Number: None

PATIENT
  Age: 80 Year
  Sex: Female
  Weight: 57.15 kg

DRUGS (1)
  1. ENBREL 50MG [Suspect]
     Indication: RHEUMATOID ARTHRITIS
     Dosage: SUBCUTANEOUS 057  INJECTABLE  WEEKLY
     Route: 058
     Dates: start: 20110117, end: 20140217

REACTIONS (2)
  - Blood pressure increased [None]
  - Gastrooesophageal reflux disease [None]
